FAERS Safety Report 11390362 (Version 1)
Quarter: 2015Q3

REPORT INFORMATION
  Report Type: Spontaneous
  Country: US (occurrence: US)
  Receive Date: 20150818
  Receipt Date: 20150818
  Transmission Date: 20151125
  Serious: No
  Sender: FDA-Public Use
  Company Number: US-ROCHE-1399892

PATIENT
  Age: 58 Year
  Sex: Male

DRUGS (4)
  1. SOVALDI [Suspect]
     Active Substance: SOFOSBUVIR
     Indication: CHRONIC HEPATITIS C
     Route: 048
     Dates: start: 20140502
  2. RIBAVIRIN. [Suspect]
     Active Substance: RIBAVIRIN
     Indication: CHRONIC HEPATITIS C
     Dosage: 3 TABLETS (FORM STRENGTH: 200 MG) EVERY 12 HOURS (DAILY DOSE:1200 MG)
     Route: 048
     Dates: start: 20140502
  3. LISINOPRIL AND HYDROCHLOROTHIAZIDE [Concomitant]
     Active Substance: HYDROCHLOROTHIAZIDE\LISINOPRIL
     Indication: HYPERTENSION
     Dosage: 20/25 MG BID
     Route: 065
  4. PEGASYS [Suspect]
     Active Substance: PEGINTERFERON ALFA-2A
     Indication: CHRONIC HEPATITIS C
     Route: 058
     Dates: start: 20140502

REACTIONS (19)
  - Fatigue [Unknown]
  - Skin atrophy [Unknown]
  - Chest pain [Recovering/Resolving]
  - Diarrhoea [Unknown]
  - Retching [Unknown]
  - Nausea [Unknown]
  - Vertigo [Unknown]
  - Abdominal pain upper [Recovering/Resolving]
  - Abdominal discomfort [Unknown]
  - Influenza like illness [Unknown]
  - Hypotension [Recovered/Resolved]
  - Feeling of body temperature change [Unknown]
  - Malaise [Unknown]
  - Decreased appetite [Unknown]
  - Asthenia [Unknown]
  - Chest discomfort [Unknown]
  - Dizziness [Unknown]
  - Chills [Unknown]
  - Headache [Unknown]

NARRATIVE: CASE EVENT DATE: 20140506
